FAERS Safety Report 5281739-5 (Version None)
Quarter: 2007Q1

REPORT INFORMATION
  Report Type: 
  Country: None (occurrence: None)
  Receive Date: 20070330
  Receipt Date: 20070319
  Transmission Date: 20070707
  Serious: Yes (Other)
  Sender: FDA-Public Use
  Company Number: CN-GLAXOSMITHKLINE-B0452432A

PATIENT
  Age: 4 Year
  Sex: Male

DRUGS (2)
  1. VENTOLIN [Suspect]
     Indication: ASTHMA
     Dosage: 100UG TWICE PER DAY
     Route: 055
     Dates: start: 20051201, end: 20070226
  2. FLIXOTIDE [Suspect]
     Indication: ASTHMA
     Dosage: 125UG TWICE PER DAY
     Route: 055
     Dates: start: 20051201

REACTIONS (2)
  - ARTHRALGIA [None]
  - ASTHMA [None]
